FAERS Safety Report 23536589 (Version 1)
Quarter: 2024Q1

REPORT INFORMATION
  Report Type: Spontaneous
  Country: US (occurrence: US)
  Receive Date: 20240219
  Receipt Date: 20240219
  Transmission Date: 20240410
  Serious: No
  Sender: FDA-Public Use
  Company Number: US-P+L Developments of Newyork Corporation-2153362

PATIENT
  Age: 61 Year
  Sex: Female

DRUGS (2)
  1. DOCOSANOL [Suspect]
     Active Substance: DOCOSANOL
     Route: 065
     Dates: start: 20231207, end: 20231214
  2. DOCOSANOL [Suspect]
     Active Substance: DOCOSANOL
     Route: 065
     Dates: start: 20231207, end: 20231214

REACTIONS (2)
  - Blister [Unknown]
  - Drug ineffective [Unknown]

NARRATIVE: CASE EVENT DATE: 20231207
